FAERS Safety Report 6989572-0 (Version None)
Quarter: 2010Q3

REPORT INFORMATION
  Report Type: 
  Country: None (occurrence: None)
  Receive Date: 20100916
  Receipt Date: 20100105
  Transmission Date: 20110219
  Serious: Yes (Hospitalization)
  Sender: FDA-Public Use
  Company Number: IS-PFIZER INC-2010001878

PATIENT
  Age: 91 Year
  Sex: Female

DRUGS (2)
  1. LYRICA [Suspect]
     Indication: BACK PAIN
     Dosage: 50 MG, 2X/DAY
     Route: 048
     Dates: start: 20090101
  2. LYRICA [Suspect]
     Dosage: 25 MG, UNK
     Dates: start: 20090101, end: 20090101

REACTIONS (3)
  - HALLUCINATION [None]
  - HYPONATRAEMIA [None]
  - INAPPROPRIATE ANTIDIURETIC HORMONE SECRETION [None]
